FAERS Safety Report 6052780-X (Version None)
Quarter: 2009Q1

REPORT INFORMATION
  Report Type: 
  Country: None (occurrence: None)
  Receive Date: 20090121
  Receipt Date: 20090114
  Transmission Date: 20090719
  Serious: Yes (Hospitalization, Disabling)
  Sender: FDA-Public Use
  Company Number: SP02184

PATIENT
  Age: 71 Year
  Sex: Female
  Weight: 66 kg

DRUGS (12)
  1. OSMOPREP [Suspect]
     Indication: COLONOSCOPY
     Dosage: ORAL
     Route: 048
     Dates: start: 20081023, end: 20081001
  2. TOPROL-XL [Concomitant]
  3. HYDROCHLOROTHIAZIDE [Concomitant]
  4. CRESTOR [Concomitant]
  5. AZULFADINE [Concomitant]
  6. ASACOL [Concomitant]
  7. ENTOCORT EC [Concomitant]
  8. ZETIA [Concomitant]
  9. CLONAZEPAM [Concomitant]
  10. NEXIUM [Concomitant]
  11. RESTORIL [Concomitant]
  12. SYNTHROID [Concomitant]

REACTIONS (13)
  - ACUTE PRERENAL FAILURE [None]
  - COLITIS [None]
  - DEHYDRATION [None]
  - DISEASE RECURRENCE [None]
  - HYPERTENSION [None]
  - HYPOPHAGIA [None]
  - IMPAIRED GASTRIC EMPTYING [None]
  - MALAISE [None]
  - NEPHROPATHY [None]
  - PNEUMONIA [None]
  - RENAL FAILURE ACUTE [None]
  - RENAL VESSEL DISORDER [None]
  - WEIGHT DECREASED [None]
